FAERS Safety Report 20843515 (Version 1)
Quarter: 2022Q2

REPORT INFORMATION
  Report Type: Report from Study
  Country: IN (occurrence: IN)
  Receive Date: 20220518
  Receipt Date: 20220518
  Transmission Date: 20220721
  Serious: Yes (Other)
  Sender: FDA-Public Use
  Company Number: IN-MYLANLABS-2022M1036730

PATIENT

DRUGS (1)
  1. MYCOPHENOLATE MOFETIL [Suspect]
     Active Substance: MYCOPHENOLATE MOFETIL
     Indication: Vitiligo
     Dosage: 500 MG TWICE DAILY FOR 15 DAYS, WITH SUBSEQUENT PLAN TO INCREASE DOSE....
     Route: 048

REACTIONS (2)
  - Leukopenia [Recovered/Resolved]
  - Off label use [Unknown]
